FAERS Safety Report 7884938-9 (Version None)
Quarter: 2011Q4

REPORT INFORMATION
  Report Type: 
  Country: None (occurrence: None)
  Receive Date: 20111102
  Receipt Date: 20111005
  Transmission Date: 20120403
  Serious: Yes (Other)
  Sender: FDA-Public Use
  Company Number: PHFR2011GB01319

PATIENT
  Sex: Male
  Weight: 87.8 kg

DRUGS (8)
  1. PEPTAC [Concomitant]
     Indication: VOMITING
     Dosage: 10 ML, QID
     Route: 048
  2. CLOZARIL [Suspect]
     Indication: SCHIZOPHRENIA, PARANOID TYPE
     Dosage: 100 MG, BID
     Route: 048
     Dates: start: 20110120
  3. AMOXICILLIN [Concomitant]
     Indication: URINARY TRACT INFECTION
     Dosage: 500 MG, TID
     Dates: start: 20110406, end: 20110414
  4. METOCLOPRAMIDE [Concomitant]
     Dosage: 10 UG, QD
     Route: 048
     Dates: start: 20110602
  5. CLOZARIL [Suspect]
     Dosage: 100 MG MORNING AND 125 MG EVENING
     Route: 048
     Dates: start: 20110604
  6. ATENOLOL [Concomitant]
     Dosage: 25 MG, QD
     Route: 048
     Dates: start: 20110509
  7. VALPROATE SODIUM [Concomitant]
     Indication: EPILEPSY
     Dosage: 300 MG, BID
     Route: 048
     Dates: start: 20110307
  8. OMEPRAZOLE [Concomitant]
     Dosage: 20 UG, QD
     Route: 048

REACTIONS (6)
  - NAUSEA [None]
  - HYPERHIDROSIS [None]
  - URINARY TRACT INFECTION [None]
  - TACHYCARDIA [None]
  - VOMITING [None]
  - GRAND MAL CONVULSION [None]
